FAERS Safety Report 19812880 (Version 1)
Quarter: 2021Q3

REPORT INFORMATION
  Report Type: Spontaneous
  Country: JP (occurrence: JP)
  Receive Date: 20210910
  Receipt Date: 20210910
  Transmission Date: 20211014
  Serious: Yes (Hospitalization)
  Sender: FDA-Public Use
  Company Number: JP-MYLANLABS-2021M1059628

PATIENT
  Age: 69 Year
  Sex: Female

DRUGS (4)
  1. ZOTAROLIMUS [Suspect]
     Active Substance: ZOTAROLIMUS
     Indication: PRODUCT USED FOR UNKNOWN INDICATION
     Dosage: A 2.5X26 MM ZOTAROLIMUS?ELUTING STENT
     Route: 065
  2. EVEROLIMUS. [Suspect]
     Active Substance: EVEROLIMUS
     Indication: ANGINA PECTORIS
     Dosage: A 2.25X38 MM EVEROLIMUS?ELUTING STENT
     Route: 065
  3. ACETYLSALICYLIC ACID [Suspect]
     Active Substance: ASPIRIN
     Indication: ANTIPLATELET REVERSAL THERAPY
     Route: 065
  4. CLOPIDOGREL [Suspect]
     Active Substance: CLOPIDOGREL BISULFATE
     Indication: ANTICOAGULANT THERAPY
     Route: 065

REACTIONS (2)
  - Kounis syndrome [Recovering/Resolving]
  - Treatment failure [Unknown]
